FAERS Safety Report 4517333-0 (Version None)
Quarter: 2004Q4

REPORT INFORMATION
  Report Type: 
  Country: None (occurrence: None)
  Receive Date: 20041012
  Receipt Date: 20031208
  Transmission Date: 20050328
  Serious: Yes (Hospitalization, Other)
  Sender: FDA-Public Use
  Company Number: 2003-12-0442

PATIENT
  Sex: Female

DRUGS (3)
  1. IMDUR [Suspect]
     Dosage: 30 MG ORAL
     Route: 048
  2. ZOCOR [Suspect]
     Dosage: 20 MG
  3. DEMADEX [Suspect]
     Dosage: 20 MG

REACTIONS (2)
  - CHEST PAIN [None]
  - SYNCOPE [None]
